FAERS Safety Report 14474089 (Version 1)
Quarter: 2018Q1

REPORT INFORMATION
  Report Type: Spontaneous
  Country: US (occurrence: US)
  Receive Date: 20180131
  Receipt Date: 20180131
  Transmission Date: 20180509
  Serious: Yes (Other)
  Sender: FDA-Public Use
  Company Number: None

PATIENT
  Sex: Male

DRUGS (1)
  1. LONSURF [Suspect]
     Active Substance: TIPIRACIL HYDROCHLORIDE\TRIFLURIDINE
     Dosage: TAKE 4 TABLETS (20MG-8.19MG) IN THE AM AND PM BY MOUTH
     Route: 048
     Dates: start: 20171214

REACTIONS (5)
  - Pharyngeal haemorrhage [None]
  - Decreased appetite [None]
  - Vomiting [None]
  - Therapy cessation [None]
  - Therapy change [None]
